FAERS Safety Report 25738071 (Version 1)
Quarter: 2025Q3

REPORT INFORMATION
  Report Type: Spontaneous
  Country: CN (occurrence: CN)
  Receive Date: 20250829
  Receipt Date: 20250829
  Transmission Date: 20251020
  Serious: Yes (Hospitalization, Disabling, Other)
  Sender: ROCHE
  Company Number: CN-ROCHE-10000370358

PATIENT
  Age: 38 Year
  Sex: Female

DRUGS (3)
  1. BEVACIZUMAB [Suspect]
     Active Substance: BEVACIZUMAB
     Indication: Breast cancer
     Route: 042
     Dates: start: 20250808, end: 20250808
  2. DOCETAXEL [Suspect]
     Active Substance: DOCETAXEL
     Indication: Breast cancer
     Route: 042
     Dates: start: 20250809, end: 20250809
  3. TISLELIZUMAB [Suspect]
     Active Substance: TISLELIZUMAB
     Indication: Breast cancer
     Route: 042
     Dates: start: 20250808, end: 20250808

REACTIONS (2)
  - Agranulocytosis [Recovering/Resolving]
  - Myelosuppression [Recovering/Resolving]

NARRATIVE: CASE EVENT DATE: 20250816
